FAERS Safety Report 7173460-3 (Version None)
Quarter: 2010Q4

REPORT INFORMATION
  Report Type: 
  Country: None (occurrence: None)
  Receive Date: 20101215
  Receipt Date: 20101215
  Transmission Date: 20110411
  Serious: No
  Sender: FDA-Public Use
  Company Number: None

PATIENT
  Age: 84 Year
  Sex: Female
  Weight: 58.9676 kg

DRUGS (9)
  1. CLINDAMYCIN [Suspect]
     Indication: CELLULITIS
     Dosage: 600 MG Q8 IV X1 DOSE
     Route: 042
     Dates: start: 20101103
  2. LANTUS [Concomitant]
  3. LASIX [Concomitant]
  4. LOVENOX [Concomitant]
  5. K-DUR [Concomitant]
  6. THYROID [Concomitant]
  7. VANCOMYCIN [Concomitant]
  8. TRAMADOL [Concomitant]
  9. ZOFRAN [Concomitant]

REACTIONS (1)
  - HOT FLUSH [None]
